FAERS Safety Report 4612348-6 (Version None)
Quarter: 2005Q1

REPORT INFORMATION
  Report Type: 
  Country: None (occurrence: None)
  Receive Date: 20050316
  Receipt Date: 20050304
  Transmission Date: 20050727
  Serious: Yes (Other)
  Sender: FDA-Public Use
  Company Number: US014845

PATIENT
  Age: 40 Year
  Sex: Female
  Weight: 53.0709 kg

DRUGS (8)
  1. GABITRIL [Suspect]
     Indication: BACK PAIN
     Dosage: 4 MG QAM/PM ORAL
     Route: 048
     Dates: start: 20050205, end: 20050205
  2. GABITRIL [Suspect]
     Indication: NECK PAIN
     Dosage: 4 MG QAM/PM ORAL
     Route: 048
     Dates: start: 20050205, end: 20050205
  3. GABITRIL [Suspect]
     Indication: NECK PAIN
     Dosage: 8 MG QHS ORAL
     Route: 048
     Dates: start: 20050205, end: 20050205
  4. NEURONTIN [Concomitant]
  5. ULTRAM [Concomitant]
  6. CYMBALTA [Concomitant]
  7. SEROQUEL [Concomitant]
  8. LORTAB [Concomitant]

REACTIONS (5)
  - CONFUSIONAL STATE [None]
  - CONVULSION [None]
  - LOSS OF CONSCIOUSNESS [None]
  - MEDICATION ERROR [None]
  - MYOFASCIAL PAIN SYNDROME [None]
